FAERS Safety Report 23634480 (Version 1)
Quarter: 2024Q1

REPORT INFORMATION
  Report Type: Spontaneous
  Country: US (occurrence: US)
  Receive Date: 20240315
  Receipt Date: 20240315
  Transmission Date: 20240410
  Serious: No
  Sender: FDA-Public Use
  Company Number: US-009507513-2403USA001753

PATIENT
  Age: 80 Year
  Sex: Female

DRUGS (3)
  1. KEYTRUDA [Suspect]
     Active Substance: PEMBROLIZUMAB
     Indication: Transitional cell carcinoma
     Dosage: 200 MG EVERY 21 DAYS
     Route: 042
  2. CORTISONE [Concomitant]
     Active Substance: CORTISONE
  3. TRAMADOL [Concomitant]
     Active Substance: TRAMADOL\TRAMADOL HYDROCHLORIDE

REACTIONS (11)
  - Ill-defined disorder [Unknown]
  - Back disorder [Unknown]
  - Musculoskeletal disorder [Unknown]
  - Blood urea increased [Unknown]
  - Osteoporosis [Not Recovered/Not Resolved]
  - Blood iron decreased [Unknown]
  - Blood glucose increased [Unknown]
  - Blood glucose increased [Unknown]
  - Haemoglobin decreased [Unknown]
  - Urticaria [Unknown]
  - Blood creatinine increased [Unknown]

NARRATIVE: CASE EVENT DATE: 20240228
